FAERS Safety Report 4627275-8 (Version None)
Quarter: 2005Q2

REPORT INFORMATION
  Report Type: 
  Country: None (occurrence: None)
  Receive Date: 20050405
  Receipt Date: 20040610
  Transmission Date: 20051028
  Serious: Yes (Hospitalization)
  Sender: FDA-Public Use
  Company Number: AR-2004-BP-04617BP

PATIENT
  Sex: Female
  Weight: 76 kg

DRUGS (6)
  1. MICARDIS [Suspect]
     Indication: CARDIOVASCULAR DISORDER
     Route: 048
     Dates: start: 20030603, end: 20031222
  2. MICARDIS [Suspect]
     Indication: CEREBROVASCULAR ACCIDENT PROPHYLAXIS
  3. RAMIPRIL [Suspect]
     Indication: CARDIOVASCULAR DISORDER
     Route: 048
     Dates: start: 20030603, end: 20031222
  4. RAMIPRIL [Suspect]
     Indication: CEREBROVASCULAR ACCIDENT PROPHYLAXIS
  5. ASPIRIN [Concomitant]
  6. ORAL HYPOGLYCEMIC AGRNTS (METFORMIN+GLIBENCLAMIDE) [Concomitant]

REACTIONS (1)
  - RENAL FAILURE [None]
